FAERS Safety Report 5128070-6 (Version None)
Quarter: 2006Q4

REPORT INFORMATION
  Report Type: 
  Country: None (occurrence: None)
  Receive Date: 20061010
  Receipt Date: 20060927
  Transmission Date: 20070319
  Serious: Yes (Disabling, Other)
  Sender: FDA-Public Use
  Company Number: 30241

PATIENT
  Age: 25 Year
  Sex: Male

DRUGS (1)
  1. IMIQUIMOD (IMIQUIMOD) [Suspect]
     Indication: ANOGENITAL WARTS
     Dosage: 0.4286 SACHET (1 SACHET, 3 IN 1 WEEK(S)), TOPICAL
     Route: 061
     Dates: start: 20060401, end: 20060901

REACTIONS (1)
  - VITILIGO [None]
